FAERS Safety Report 10885242 (Version 2)
Quarter: 2020Q3

REPORT INFORMATION
  Report Type: Spontaneous
  Country: JP (occurrence: JP)
  Receive Date: 20150304
  Receipt Date: 20200818
  Transmission Date: 20201102
  Serious: Yes (Hospitalization, Disabling)
  Sender: FDA-Public Use
  Company Number: PHJP2015JP002300

PATIENT
  Age: 60 Year
  Sex: Male
  Weight: 53 kg

DRUGS (1)
  1. TASIGNA [Suspect]
     Active Substance: NILOTINIB
     Indication: CHRONIC MYELOID LEUKAEMIA
     Dosage: 400 MG, BID
     Route: 048
     Dates: start: 20091228, end: 20150126

REACTIONS (7)
  - Pain in extremity [Unknown]
  - Intermittent claudication [Unknown]
  - Hypoaesthesia [Unknown]
  - Vertigo [Unknown]
  - Cerebellar infarction [Recovering/Resolving]
  - Peripheral artery occlusion [Recovered/Resolved with Sequelae]
  - Peripheral coldness [Unknown]

NARRATIVE: CASE EVENT DATE: 201406
